FAERS Safety Report 4452513-4 (Version None)
Quarter: 2004Q3

REPORT INFORMATION
  Report Type: 
  Country: None (occurrence: None)
  Receive Date: 20040916
  Receipt Date: 20040903
  Transmission Date: 20050211
  Serious: Yes (Hospitalization)
  Sender: FDA-Public Use
  Company Number: 031-0981-M0000094

PATIENT
  Age: 66 Year
  Sex: Male
  Weight: 79.5 kg

DRUGS (13)
  1. ATORVASTATIN (ATORVASTATIN) [Suspect]
     Indication: HYPERLIPIDAEMIA
     Dosage: SEE IMAGE
     Route: 048
     Dates: start: 19990325, end: 19990519
  2. ATORVASTATIN (ATORVASTATIN) [Suspect]
     Indication: HYPERLIPIDAEMIA
     Dosage: SEE IMAGE
     Route: 048
     Dates: start: 19990521
  3. LOSARTAN POTASSIUM (LOSARTAN OTASSIUM) [Concomitant]
  4. FUROSEMIDE [Concomitant]
  5. BUDESONIDE (BUDESONIDE) [Concomitant]
  6. IPRATROPIUM BROMIDE [Concomitant]
  7. FENOTEROL (FENOTEROL) [Concomitant]
  8. TEMAZEPAM [Concomitant]
  9. SERTRALINE HYDROCHLORIDE [Concomitant]
  10. OXAZEPAM [Concomitant]
  11. OMEPRAZOLE [Concomitant]
  12. ACETYLSALICYLIC ACID 9ACETYLSALICYLIC ACID) [Concomitant]
  13. NITRATES (ORGANIC NITRATES0 [Concomitant]

REACTIONS (7)
  - CHRONIC OBSTRUCTIVE AIRWAYS DISEASE EXACERBATED [None]
  - ERYSIPELAS [None]
  - INFLUENZA [None]
  - MELAENA [None]
  - OESOPHAGEAL CANDIDIASIS [None]
  - PNEUMONIA [None]
  - THROMBOPHLEBITIS [None]
